FAERS Safety Report 7572182-4 (Version None)
Quarter: 2011Q2

REPORT INFORMATION
  Report Type: 
  Country: None (occurrence: None)
  Receive Date: 20110624
  Receipt Date: 20110611
  Transmission Date: 20111010
  Serious: Yes (Hospitalization, Other)
  Sender: FDA-Public Use
  Company Number: PHHY2011TR52573

PATIENT
  Age: 8 Year
  Sex: Female

DRUGS (1)
  1. CARBAMAZEPINE [Suspect]
     Indication: EPILEPSY
     Route: 062

REACTIONS (14)
  - DRUG RASH WITH EOSINOPHILIA AND SYSTEMIC SYMPTOMS [None]
  - HEPATOSPLENOMEGALY [None]
  - DRUG HYPERSENSITIVITY [None]
  - SKIN TEST POSITIVE [None]
  - RASH MACULO-PAPULAR [None]
  - GAMMA-GLUTAMYLTRANSFERASE INCREASED [None]
  - FACE OEDEMA [None]
  - STREPTOCOCCAL INFECTION [None]
  - CHEILITIS [None]
  - PYREXIA [None]
  - EOSINOPHIL COUNT INCREASED [None]
  - LYMPHADENOPATHY [None]
  - SKIN EXFOLIATION [None]
  - RASH [None]
